FAERS Safety Report 25495026 (Version 1)
Quarter: 2025Q2

REPORT INFORMATION
  Report Type: Spontaneous
  Country: US (occurrence: US)
  Receive Date: 20250630
  Receipt Date: 20250630
  Transmission Date: 20250717
  Serious: Yes (Hospitalization, Other)
  Sender: PFIZER
  Company Number: US-HOSPIRA-319820

PATIENT
  Age: 7 Year
  Sex: Male

DRUGS (8)
  1. PROPOFOL [Suspect]
     Active Substance: PROPOFOL
     Indication: General anaesthesia
  2. PROPOFOL [Suspect]
     Active Substance: PROPOFOL
     Indication: Anaesthesia
     Route: 041
  3. ATROPINE [Concomitant]
     Active Substance: ATROPINE
     Indication: General anaesthesia
  4. FENTANYL [Concomitant]
     Active Substance: FENTANYL
     Indication: General anaesthesia
  5. VECURONIUM [Concomitant]
     Active Substance: VECURONIUM BROMIDE
     Indication: General anaesthesia
  6. ONDANSETRON [Concomitant]
     Active Substance: ONDANSETRON
     Indication: General anaesthesia
  7. PROSTIGMIN /00045902/ [Concomitant]
     Indication: General anaesthesia
  8. VALPROIC ACID [Concomitant]
     Active Substance: VALPROIC ACID
     Indication: Cerebral palsy

REACTIONS (1)
  - Priapism [Recovered/Resolved]
